FAERS Safety Report 6373267-0 (Version None)
Quarter: 2009Q3

REPORT INFORMATION
  Report Type: 
  Country: None (occurrence: None)
  Receive Date: 20090924
  Receipt Date: 20090917
  Transmission Date: 20100115
  Serious: No
  Sender: FDA-Public Use
  Company Number: US-JNJFOC-20090906051

PATIENT
  Sex: Female
  Weight: 49.9 kg

DRUGS (3)
  1. DURAGESIC-100 [Suspect]
     Indication: HEADACHE
     Route: 062
  2. DURAGESIC-100 [Suspect]
     Route: 062
     Dates: start: 20090916
  3. VALIUM [Concomitant]
     Route: 048

REACTIONS (4)
  - DRUG INEFFECTIVE [None]
  - FALL [None]
  - INSOMNIA [None]
  - WRONG TECHNIQUE IN DRUG USAGE PROCESS [None]
